FAERS Safety Report 14541845 (Version 1)
Quarter: 2018Q1

REPORT INFORMATION
  Report Type: Spontaneous
  Country: US (occurrence: US)
  Receive Date: 20180216
  Receipt Date: 20180216
  Transmission Date: 20180509
  Serious: Yes (Hospitalization)
  Sender: FDA-Public Use
  Company Number: US-VERTEX PHARMACEUTICALS-2018-001100

PATIENT
  Age: 21 Year
  Sex: Male

DRUGS (1)
  1. ORKAMBI [Suspect]
     Active Substance: IVACAFTOR\LUMACAFTOR
     Indication: CYSTIC FIBROSIS
     Dosage: 2 TABLETS (200/125 MG), BID
     Route: 048
     Dates: start: 2017

REACTIONS (3)
  - Sputum discoloured [Recovering/Resolving]
  - Cough [Recovering/Resolving]
  - Liver function test decreased [Recovering/Resolving]

NARRATIVE: CASE EVENT DATE: 20180206
